FAERS Safety Report 4896680-7 (Version None)
Quarter: 2005Q4

REPORT INFORMATION
  Report Type: 
  Country: None (occurrence: None)
  Receive Date: 20051221
  Receipt Date: 20050105
  Transmission Date: 20060501
  Serious: Yes (Hospitalization)
  Sender: FDA-Public Use
  Company Number: FRVA20040002

PATIENT
  Age: 45 Year
  Sex: Female

DRUGS (2)
  1. FROVATRIPTAN 2.5 MG MENARINI PHAR [Suspect]
     Indication: MIGRAINE
     Dosage: 10 MG DAILY PO
     Route: 048
     Dates: start: 20040825, end: 20040827
  2. AMITRIPTYLINE HCL [Suspect]
     Indication: MIGRAINE PROPHYLAXIS
     Dosage: 10 MG DAILY PO
     Route: 048

REACTIONS (2)
  - ARTERIOSPASM CORONARY [None]
  - OVERDOSE [None]
